FAERS Safety Report 14243292 (Version 1)
Quarter: 2017Q4

REPORT INFORMATION
  Report Type: Spontaneous
  Country: EG (occurrence: EG)
  Receive Date: 20171201
  Receipt Date: 20171201
  Transmission Date: 20180321
  Serious: Yes (Other)
  Sender: FDA-Public Use
  Company Number: EG-MYLANLABS-2017M1075284

PATIENT
  Age: 35 Year
  Sex: Male

DRUGS (1)
  1. ACICLOVIR [Suspect]
     Active Substance: ACYCLOVIR
     Indication: ENCEPHALITIS VIRAL
     Dosage: 750MG/8HOURS
     Route: 042

REACTIONS (2)
  - Nephropathy [Recovered/Resolved]
  - Depressed level of consciousness [Recovered/Resolved]
